FAERS Safety Report 7607979-5 (Version None)
Quarter: 2011Q3

REPORT INFORMATION
  Report Type: 
  Country: None (occurrence: None)
  Receive Date: 20110714
  Receipt Date: 20110711
  Transmission Date: 20111222
  Serious: No
  Sender: FDA-Public Use
  Company Number: US-PFIZER INC-2011156537

PATIENT
  Sex: Female
  Weight: 51.247 kg

DRUGS (2)
  1. AMBIEN [Concomitant]
     Indication: SLEEP DISORDER
     Dosage: 4 MG, 3X/WEEK
     Route: 048
  2. TOVIAZ [Suspect]
     Indication: HYPERTONIC BLADDER
     Dosage: 4 MG, DAILY
     Route: 048
     Dates: start: 20110501

REACTIONS (2)
  - DRUG INEFFECTIVE [None]
  - BLADDER SPASM [None]
